FAERS Safety Report 20541861 (Version 1)
Quarter: 2022Q1

REPORT INFORMATION
  Report Type: Spontaneous
  Country: CA (occurrence: CA)
  Receive Date: 20220302
  Receipt Date: 20220302
  Transmission Date: 20220423
  Serious: Yes (Other)
  Sender: FDA-Public Use
  Company Number: CA-JNJFOC-20211201913

PATIENT
  Age: 66 Year
  Sex: Female
  Weight: 65 kg

DRUGS (2)
  1. REMICADE [Suspect]
     Active Substance: INFLIXIMAB
     Indication: Crohn^s disease
     Route: 042
  2. IMURAN [Concomitant]
     Active Substance: AZATHIOPRINE
     Route: 048

REACTIONS (7)
  - Pericarditis [Not Recovered/Not Resolved]
  - Haemorrhoids [Not Recovered/Not Resolved]
  - Impaired quality of life [Not Recovered/Not Resolved]
  - Proctitis [Not Recovered/Not Resolved]
  - Arthritis [Not Recovered/Not Resolved]
  - Blood pressure decreased [Not Recovered/Not Resolved]
  - Off label use [Not Recovered/Not Resolved]
